FAERS Safety Report 6179069-2 (Version None)
Quarter: 2009Q2

REPORT INFORMATION
  Report Type: 
  Country: None (occurrence: None)
  Receive Date: 20090505
  Receipt Date: 20090424
  Transmission Date: 20091009
  Serious: Yes (Other)
  Sender: FDA-Public Use
  Company Number: PHHY2009CA15553

PATIENT
  Age: 94 Year
  Sex: Female

DRUGS (1)
  1. EXELON [Suspect]
     Indication: DEMENTIA
     Dosage: 4.6 MG/24 H
     Route: 062
     Dates: start: 20090109

REACTIONS (3)
  - ABNORMAL BEHAVIOUR [None]
  - ANGER [None]
  - MICTURITION FREQUENCY DECREASED [None]
